FAERS Safety Report 12689524 (Version 1)
Quarter: 2016Q3

REPORT INFORMATION
  Report Type: Spontaneous
  Country: DE (occurrence: DE)
  Receive Date: 20160826
  Receipt Date: 20160826
  Transmission Date: 20161109
  Serious: Yes (Hospitalization)
  Sender: FDA-Public Use
  Company Number: DE-SUN PHARMACEUTICAL INDUSTRIES LTD-2016R1-122713

PATIENT
  Age: 66 Year
  Sex: Female

DRUGS (2)
  1. SITAGLIPTIN [Interacting]
     Active Substance: SITAGLIPTIN
     Indication: DIABETES MELLITUS
     Dosage: UNK
     Route: 065
  2. AMOXICILLIN. [Suspect]
     Active Substance: AMOXICILLIN
     Indication: OTITIS MEDIA
     Dosage: UNK
     Route: 065

REACTIONS (5)
  - Drug interaction [Recovering/Resolving]
  - Pruritus [Recovering/Resolving]
  - Blood creatinine increased [Unknown]
  - Skin lesion [Recovering/Resolving]
  - Hypersensitivity [Not Recovered/Not Resolved]
